FAERS Safety Report 9381453 (Version 2)
Quarter: 2013Q3

REPORT INFORMATION
  Report Type: Report from Study
  Country: US (occurrence: US)
  Receive Date: 20130703
  Receipt Date: 20130703
  Transmission Date: 20140515
  Serious: Yes (Hospitalization, Other)
  Sender: FDA-Public Use
  Company Number: US-JNJFOC-20111009882

PATIENT
  Age: 70 Year
  Sex: Male
  Weight: 88 kg

DRUGS (6)
  1. JNJ-28431754 [Suspect]
     Route: 048
  2. JNJ-28431754 [Suspect]
     Indication: TYPE 2 DIABETES MELLITUS
     Route: 048
  3. SIMVASTATIN [Concomitant]
     Indication: BLOOD CHOLESTEROL
     Route: 048
  4. METFORMIN [Concomitant]
     Indication: TYPE 2 DIABETES MELLITUS
     Route: 048
  5. LISINOPRIL [Concomitant]
     Indication: BLOOD PRESSURE
     Route: 048
  6. GEMFIBROZIL [Concomitant]
     Indication: BLOOD CHOLESTEROL
     Route: 048

REACTIONS (7)
  - Atrial fibrillation [Recovering/Resolving]
  - Pleural effusion [None]
  - Atelectasis [None]
  - Lobar pneumonia [None]
  - Dilatation ventricular [None]
  - Left ventricular dysfunction [None]
  - Asbestosis [None]
